FAERS Safety Report 11754228 (Version 2)
Quarter: 2016Q4

REPORT INFORMATION
  Report Type: Spontaneous
  Country: US (occurrence: US)
  Receive Date: 20151119
  Receipt Date: 20161118
  Transmission Date: 20170206
  Serious: No
  Sender: FDA-Public Use
  Company Number: US-MYLANLABS-2015M1028570

PATIENT
  Sex: Female

DRUGS (3)
  1. NADOLOL TABLETS, USP [Suspect]
     Active Substance: NADOLOL
     Indication: HEART RATE INCREASED
  2. NADOLOL TABLETS, USP [Suspect]
     Active Substance: NADOLOL
     Indication: OFF LABEL USE
  3. NADOLOL TABLETS, USP [Suspect]
     Active Substance: NADOLOL
     Indication: HEART RATE IRREGULAR
     Dosage: 20 MG, QD
     Route: 048
     Dates: start: 201508

REACTIONS (1)
  - Drug ineffective for unapproved indication [Not Recovered/Not Resolved]

NARRATIVE: CASE EVENT DATE: 201508
